FAERS Safety Report 11965660 (Version 1)
Quarter: 2016Q1

REPORT INFORMATION
  Report Type: Spontaneous
  Country: US (occurrence: US)
  Receive Date: 20160127
  Receipt Date: 20160127
  Transmission Date: 20160526
  Serious: Yes (Hospitalization)
  Sender: FDA-Public Use
  Company Number: PHEH2016US001587

PATIENT
  Sex: Female

DRUGS (4)
  1. ZOLOFT [Suspect]
     Active Substance: SERTRALINE HYDROCHLORIDE
     Indication: SUICIDAL IDEATION
  2. MELATONIN [Concomitant]
     Active Substance: MELATONIN
     Indication: SLEEP DISORDER
     Dosage: 2 DF, QD AT BED TIME
     Route: 048
  3. RITALIN LA [Suspect]
     Active Substance: METHYLPHENIDATE HYDROCHLORIDE
     Indication: ATTENTION DEFICIT/HYPERACTIVITY DISORDER
     Dosage: 1 DF, QD
     Route: 048
     Dates: end: 20151209
  4. ZOLOFT [Suspect]
     Active Substance: SERTRALINE HYDROCHLORIDE
     Indication: DEPRESSION
     Dosage: 1 DF, QD
     Route: 048

REACTIONS (12)
  - Suicidal ideation [Unknown]
  - Depressed mood [Unknown]
  - Homicidal ideation [Unknown]
  - Self injurious behaviour [Unknown]
  - Decreased activity [Unknown]
  - Scratch [Unknown]
  - Negativism [Unknown]
  - Anger [Unknown]
  - Pressure of speech [Unknown]
  - Depression [Unknown]
  - Speech disorder [Unknown]
  - Tension [Unknown]
